FAERS Safety Report 9499354 (Version 1)
Quarter: 2013Q3

REPORT INFORMATION
  Report Type: Spontaneous
  Country: US (occurrence: US)
  Receive Date: 20130905
  Receipt Date: 20130905
  Transmission Date: 20140515
  Serious: Yes (Other)
  Sender: FDA-Public Use
  Company Number: US-JNJFOC-20130813999

PATIENT
  Sex: Female

DRUGS (2)
  1. MOTRIN IB UNSPECIFIED [Suspect]
     Route: 065
  2. MOTRIN IB UNSPECIFIED [Suspect]
     Indication: PAIN
     Route: 065

REACTIONS (2)
  - Erosive oesophagitis [Unknown]
  - Drug ineffective [Unknown]
